FAERS Safety Report 12036828 (Version 1)
Quarter: 2016Q1

REPORT INFORMATION
  Report Type: Spontaneous
  Country: US (occurrence: US)
  Receive Date: 20160208
  Receipt Date: 20160208
  Transmission Date: 20160526
  Serious: No
  Sender: FDA-Public Use
  Company Number: US-ASTRAZENECA-2016SE09429

PATIENT
  Sex: Male
  Weight: 93 kg

DRUGS (2)
  1. SEROQUEL [Suspect]
     Active Substance: QUETIAPINE FUMARATE
     Indication: SLEEP DISORDER
     Route: 048
     Dates: end: 201509
  2. SEROQUEL [Suspect]
     Active Substance: QUETIAPINE FUMARATE
     Indication: SLEEP DISORDER
     Route: 048
     Dates: start: 2010, end: 201508

REACTIONS (15)
  - Product use issue [Unknown]
  - Speech disorder [Unknown]
  - General physical health deterioration [Unknown]
  - Fatigue [Unknown]
  - Dysphagia [Unknown]
  - Off label use [Unknown]
  - Weight increased [Unknown]
  - Abdominal distension [Unknown]
  - Injury [Unknown]
  - Pharyngeal oedema [Unknown]
  - Oropharyngeal spasm [Unknown]
  - Blood glucose fluctuation [Unknown]
  - Feeling abnormal [Unknown]
  - Memory impairment [Unknown]
  - Vision blurred [Unknown]
